FAERS Safety Report 6620315-6 (Version None)
Quarter: 2010Q1

REPORT INFORMATION
  Report Type: 
  Country: None (occurrence: None)
  Receive Date: 20100304
  Receipt Date: 20100223
  Transmission Date: 20100710
  Serious: Yes (Other)
  Sender: FDA-Public Use
  Company Number: 20108332

PATIENT
  Sex: Male

DRUGS (1)
  1. LIORESAL [Suspect]
     Indication: MUSCLE SPASTICITY
     Dosage: 288 MCG, DAILY, INTRATHECAL
     Route: 037

REACTIONS (4)
  - DEVICE MALFUNCTION [None]
  - MUSCULOSKELETAL STIFFNESS [None]
  - PRURITUS [None]
  - WITHDRAWAL SYNDROME [None]
